FAERS Safety Report 14471372 (Version 1)
Quarter: 2018Q1

REPORT INFORMATION
  Report Type: Spontaneous
  Country: AU (occurrence: AU)
  Receive Date: 20180130
  Receipt Date: 20180130
  Transmission Date: 20180509
  Serious: Yes (Life-Threatening)
  Sender: FDA-Public Use
  Company Number: None

PATIENT
  Age: 29 Year
  Sex: Male
  Weight: 73 kg

DRUGS (1)
  1. MOXIFLOXACIN. [Suspect]
     Active Substance: MOXIFLOXACIN

REACTIONS (4)
  - Loss of consciousness [None]
  - Asphyxia [None]
  - Suicidal ideation [None]
  - Depression [None]

NARRATIVE: CASE EVENT DATE: 20171208
